FAERS Safety Report 7298228-9 (Version None)
Quarter: 2011Q1

REPORT INFORMATION
  Report Type: 
  Country: None (occurrence: None)
  Receive Date: 20110217
  Receipt Date: 20101206
  Transmission Date: 20110831
  Serious: No
  Sender: FDA-Public Use
  Company Number: US-BAYER-201013892NA

PATIENT
  Sex: Female
  Weight: 118.82 kg

DRUGS (3)
  1. MIRENA [Suspect]
     Dosage: FREQUENCY: CONTINUOUS
     Route: 015
     Dates: start: 20100129, end: 20100215
  2. CYMBALTA [Concomitant]
     Indication: DEPRESSION
     Dosage: DAILY DOSE 25 MG
     Route: 048
  3. MIRENA [Suspect]
     Indication: CONTRACEPTION
     Dosage: 20 ?G, CONT
     Route: 015
     Dates: start: 20100129, end: 20100215

REACTIONS (2)
  - DEVICE DISLOCATION [None]
  - PREGNANCY WITH CONTRACEPTIVE DEVICE [None]
